FAERS Safety Report 18417581 (Version 1)
Quarter: 2020Q4

REPORT INFORMATION
  Report Type: Spontaneous
  Country: US (occurrence: US)
  Receive Date: 20201022
  Receipt Date: 20201022
  Transmission Date: 20210114
  Serious: No
  Sender: FDA-Public Use
  Company Number: US-SEATTLE GENETICS-2020SGN03883

PATIENT
  Sex: Female

DRUGS (2)
  1. TUKYSA [Suspect]
     Active Substance: TUCATINIB
     Indication: BREAST CANCER FEMALE
     Dosage: UNK
     Route: 065
  2. CAPECITABINE. [Suspect]
     Active Substance: CAPECITABINE
     Indication: BREAST CANCER FEMALE

REACTIONS (9)
  - Unevaluable event [Unknown]
  - Balance disorder [Unknown]
  - Dry mouth [Unknown]
  - Altered visual depth perception [Unknown]
  - Neuropathy peripheral [Unknown]
  - Thirst [Unknown]
  - Tremor [Unknown]
  - Pain in extremity [Unknown]
  - Diarrhoea [Unknown]
